FAERS Safety Report 5960562-X (Version None)
Quarter: 2008Q4

REPORT INFORMATION
  Report Type: 
  Country: None (occurrence: None)
  Receive Date: 20081120
  Receipt Date: 20080926
  Transmission Date: 20090506
  Serious: No
  Sender: FDA-Public Use
  Company Number: US-ABBOTT-08P-163-0478785-00

PATIENT
  Sex: Male
  Weight: 54.48 kg

DRUGS (1)
  1. BIAXIN [Suspect]
     Indication: SINUSITIS
     Dates: start: 20030101

REACTIONS (2)
  - CHEST DISCOMFORT [None]
  - DYSPNOEA [None]
